FAERS Safety Report 4918208-5 (Version None)
Quarter: 2006Q1

REPORT INFORMATION
  Report Type: 
  Country: None (occurrence: None)
  Receive Date: 20060215
  Receipt Date: 20060208
  Transmission Date: 20060701
  Serious: Yes (Life-Threatening, Hospitalization, Other)
  Sender: FDA-Public Use
  Company Number: HQWYE724409FEB06

PATIENT
  Age: 58 Year
  Sex: Female

DRUGS (15)
  1. RAPAMUNE [Suspect]
     Indication: PROPHYLAXIS AGAINST TRANSPLANT REJECTION
     Dosage: 3 MG 1X PER 1 DAY ORAL
     Route: 048
     Dates: start: 20040506, end: 20040514
  2. AMLODIPINE BESYLATE [Concomitant]
  3. ZENAPAX [Concomitant]
  4. ZENAPAX [Concomitant]
  5. MYCOPHENOLATE MOFETIL (MYCOPHENOLATE MOFETIL) [Concomitant]
  6. MYCOPHENOLATE MOFETIL (MYCOPHENOLATE MOFETIL) [Concomitant]
  7. METHYLPREDNISOLONE [Concomitant]
  8. METHYLPREDNISOLONE [Concomitant]
  9. PREDNISONE TAB [Concomitant]
  10. CEFEPIME (CEFEPIME) [Concomitant]
  11. NITROGLICERINA (GLYCERYL TRINITRATE) [Concomitant]
  12. TEICOPLANIN (TEICOPLANIN) [Concomitant]
  13. METOPROLOL (METOPROLOL) [Concomitant]
  14. SULFAMETHOXAZOLE + TRIMETHOPRIM [Concomitant]
  15. TACROLIMUS (TACROLIMUS) [Concomitant]

REACTIONS (3)
  - HERPES ZOSTER [None]
  - PNEUMONITIS [None]
  - POST HERPETIC NEURALGIA [None]
